FAERS Safety Report 6944578-2 (Version None)
Quarter: 2010Q3

REPORT INFORMATION
  Report Type: 
  Country: None (occurrence: None)
  Receive Date: 20100827
  Receipt Date: 20100114
  Transmission Date: 20110219
  Serious: Yes (Other)
  Sender: FDA-Public Use
  Company Number: US-PFIZER INC-2010006961

PATIENT
  Sex: Female
  Weight: 63.492 kg

DRUGS (4)
  1. NEURONTIN [Suspect]
     Indication: ARTHRITIS
     Dosage: 500 MG, 2X/DAY
     Route: 048
  2. NEURONTIN [Suspect]
     Indication: NEUROPATHY PERIPHERAL
  3. GABAPENTIN [Suspect]
     Indication: ARTHRITIS
     Dosage: UNK
  4. GABAPENTIN [Suspect]
     Indication: NEUROPATHY PERIPHERAL

REACTIONS (8)
  - ASTHMA [None]
  - BLOOD CHOLESTEROL INCREASED [None]
  - EAR INFECTION [None]
  - GLUCOSE TOLERANCE IMPAIRED [None]
  - OROPHARYNGEAL PAIN [None]
  - SEASONAL ALLERGY [None]
  - SINUS DISORDER [None]
  - TINNITUS [None]
